FAERS Safety Report 23961765 (Version 1)
Quarter: 2024Q2

REPORT INFORMATION
  Report Type: Other
  Country: JP (occurrence: JP)
  Receive Date: 20240611
  Receipt Date: 20240611
  Transmission Date: 20240716
  Serious: Yes (Death, Other)
  Sender: FDA-Public Use
  Company Number: JP-CHUGAI-2021022751

PATIENT
  Age: 53 Year
  Sex: Female
  Weight: 60.7 kg

DRUGS (2)
  1. TECENTRIQ [Suspect]
     Active Substance: ATEZOLIZUMAB
     Indication: Triple negative breast cancer
     Dosage: MOST RECENT DOSE PRIOR TO AE //2021
     Route: 041
     Dates: start: 20210608
  2. ABRAXANE [Suspect]
     Active Substance: PACLITAXEL
     Indication: Triple negative breast cancer
     Dosage: MOST RECENT DOSE PRIOR TO AE //2021
     Route: 041
     Dates: start: 20210608

REACTIONS (4)
  - Liver disorder [Unknown]
  - Triple negative breast cancer [Fatal]
  - Anaemia [Recovered/Resolved]
  - Pain of skin [Recovering/Resolving]

NARRATIVE: CASE EVENT DATE: 20210609
